FAERS Safety Report 7360531-1 (Version None)
Quarter: 2011Q1

REPORT INFORMATION
  Report Type: 
  Country: None (occurrence: None)
  Receive Date: 20110318
  Receipt Date: 20110311
  Transmission Date: 20110831
  Serious: Yes (Hospitalization, Other)
  Sender: FDA-Public Use
  Company Number: US-PFIZER INC-2005172578

PATIENT
  Sex: Female

DRUGS (8)
  1. INSULIN [Concomitant]
     Dosage: UNK
     Dates: start: 19700101, end: 20020101
  2. CLONAZEPAM [Concomitant]
     Dosage: UNK
     Dates: start: 20000101, end: 20040101
  3. EFFEXOR [Concomitant]
     Dosage: UNK
     Dates: start: 20000101, end: 20040101
  4. HUMULIN R [Concomitant]
     Dosage: UNK
     Dates: start: 20010101
  5. NOVOLIN 70/30 [Concomitant]
     Dosage: UNK
     Dates: start: 20010101
  6. NEURONTIN [Suspect]
     Indication: DIABETIC NEUROPATHY
  7. NEURONTIN [Suspect]
     Indication: NEUROPATHY PERIPHERAL
     Dates: start: 19990101, end: 20040101
  8. CELEXA [Concomitant]
     Dosage: UNK
     Dates: start: 20000101, end: 20040101

REACTIONS (4)
  - SUICIDAL IDEATION [None]
  - DEPRESSION [None]
  - SUICIDE ATTEMPT [None]
  - INTENTIONAL OVERDOSE [None]
